FAERS Safety Report 8974157 (Version 3)
Quarter: 2013Q2

REPORT INFORMATION
  Report Type: Spontaneous
  Country: TR (occurrence: None)
  Receive Date: 20121210
  Receipt Date: 20130614
  Transmission Date: 20140414
  Serious: Yes (Life-Threatening, Hospitalization)
  Sender: FDA-Public Use
  Company Number: VAL_01161_2012

PATIENT
  Age: 66 Year
  Sex: Male

DRUGS (4)
  1. METOPROLOL TARTRATE [Suspect]
     Indication: PRODUCT USED FOR UNKNOWN INDICATION
     Dosage: (DF)
  2. LCZ696 [Suspect]
     Indication: CARDIAC FAILURE CHRONIC
     Dosage: (DF)
     Route: 048
     Dates: start: 20121127
  3. SPIRONOLACTONE [Suspect]
     Indication: PRODUCT USED FOR UNKNOWN INDICATION
     Dosage: (DF)
  4. FUROSEMIDE [Suspect]
     Indication: PRODUCT USED FOR UNKNOWN INDICATION
     Dosage: (DF)

REACTIONS (5)
  - Fatigue [None]
  - Blood pressure decreased [None]
  - Hypotension [None]
  - Blood creatinine increased [None]
  - Blood potassium increased [None]
